FAERS Safety Report 4312007-3 (Version None)
Quarter: 2004Q1

REPORT INFORMATION
  Report Type: 
  Country: None (occurrence: None)
  Receive Date: 20040305
  Receipt Date: 20031211
  Transmission Date: 20041129
  Serious: No
  Sender: FDA-Public Use
  Company Number: US-GLAXOSMITHKLINE-A0442802A

PATIENT
  Age: 83 Year
  Sex: Female

DRUGS (3)
  1. REQUIP [Suspect]
     Indication: NEUROPATHY PERIPHERAL
     Dosage: .25MG THREE TIMES PER DAY
     Route: 048
     Dates: start: 20030401
  2. SINEMET [Concomitant]
  3. PANCREASE [Concomitant]

REACTIONS (1)
  - DRUG INEFFECTIVE [None]
